FAERS Safety Report 17286412 (Version 1)
Quarter: 2020Q1

REPORT INFORMATION
  Report Type: Spontaneous
  Country: US (occurrence: US)
  Receive Date: 20200118
  Receipt Date: 20200118
  Transmission Date: 20200409
  Serious: No
  Sender: FDA-Public Use
  Company Number: US-ELI_LILLY_AND_COMPANY-US202001007050

PATIENT
  Age: 33 Year
  Sex: Female

DRUGS (1)
  1. TALTZ [Suspect]
     Active Substance: IXEKIZUMAB
     Indication: PSORIASIS
     Dosage: 80 MG, UNKNOWN
     Route: 065
     Dates: start: 20191231

REACTIONS (4)
  - Injection site erythema [Unknown]
  - Injection site mass [Unknown]
  - Injection site warmth [Unknown]
  - Injection site pain [Unknown]

NARRATIVE: CASE EVENT DATE: 20200113
